FAERS Safety Report 6999345-0 (Version None)
Quarter: 2010Q3

REPORT INFORMATION
  Report Type: 
  Country: None (occurrence: None)
  Receive Date: 20100920
  Receipt Date: 20100308
  Transmission Date: 20110219
  Serious: Yes (Other)
  Sender: FDA-Public Use
  Company Number: US-ASTRAZENECA-2007UW16993

PATIENT
  Age: 17631 Day
  Sex: Female
  Weight: 127 kg

DRUGS (12)
  1. SEROQUEL [Suspect]
     Dosage: 25 MG TO 200 MG
     Route: 048
     Dates: start: 19990708
  2. SEROQUEL [Suspect]
     Route: 048
     Dates: start: 19990621
  3. PROZAC [Concomitant]
     Dates: start: 20010515
  4. DEPAKOTE [Concomitant]
     Dates: start: 20010306
  5. KLONOPIN [Concomitant]
     Dates: start: 20000329
  6. LOTREL [Concomitant]
     Dosage: 5/20 ONE TAB QD
     Dates: start: 20040802
  7. LOTREL [Concomitant]
     Dosage: 5/10
     Dates: start: 20040802
  8. ZYPREXA [Concomitant]
     Dates: start: 20000329
  9. LASIX [Concomitant]
     Dates: start: 20000329
  10. LEVOXYL [Concomitant]
     Dates: start: 20000523
  11. METHADONE [Concomitant]
     Dates: start: 20000523
  12. HYDROCHLOROTHIAZIDE [Concomitant]
     Dates: start: 20081002

REACTIONS (3)
  - DIABETES MELLITUS [None]
  - DIABETIC COMA [None]
  - PANCREATITIS [None]
